FAERS Safety Report 21249024 (Version 3)
Quarter: 2025Q3

REPORT INFORMATION
  Report Type: Report from Study
  Country: US (occurrence: US)
  Receive Date: 20220824
  Receipt Date: 20250710
  Transmission Date: 20251020
  Serious: Yes (Other)
  Sender: JAZZ
  Company Number: US-JAZZ-2022-US-027071

PATIENT
  Sex: Female
  Weight: 11.338 kg

DRUGS (1)
  1. EPIDIOLEX [Suspect]
     Active Substance: CANNABIDIOL
     Indication: Epilepsy
     Dosage: 0.5 MILLILITER, BID
     Route: 048
     Dates: start: 20220713

REACTIONS (2)
  - Seizure [Unknown]
  - Adverse drug reaction [Unknown]
